FAERS Safety Report 9733596 (Version 1)
Quarter: 2013Q4

REPORT INFORMATION
  Report Type: Spontaneous
  Country: FR (occurrence: FR)
  Receive Date: 20131205
  Receipt Date: 20131205
  Transmission Date: 20140711
  Serious: Yes (Hospitalization)
  Sender: FDA-Public Use
  Company Number: FR-GLAXOSMITHKLINE-B0948162A

PATIENT
  Age: 64 Year
  Sex: Female

DRUGS (11)
  1. ARIXTRA [Suspect]
     Indication: PRODUCT USED FOR UNKNOWN INDICATION
     Dosage: 5MG PER DAY
     Route: 058
     Dates: start: 2013, end: 20130416
  2. LEVOTHYROX [Concomitant]
     Dosage: 75MCG PER DAY
     Route: 048
  3. CALCIUM ACETATE [Concomitant]
     Dosage: 660MG PER DAY
     Route: 048
  4. ATACAND [Concomitant]
     Dosage: 4MG PER DAY
     Route: 048
  5. AVLOCARDYL [Concomitant]
     Dosage: 40MG PER DAY
     Route: 048
  6. INEXIUM [Concomitant]
     Dosage: 20MG PER DAY
     Route: 048
  7. IMOVANE [Concomitant]
     Dosage: 7.5MG PER DAY
     Route: 048
  8. MIMPARA [Concomitant]
     Dosage: 30MG PER DAY
     Route: 048
  9. KAYEXALATE [Concomitant]
     Route: 048
  10. LYRICA [Concomitant]
     Dosage: 50MG PER DAY
     Route: 048
  11. EPITOMAX [Concomitant]
     Dosage: 25MG PER DAY
     Route: 048

REACTIONS (2)
  - Haematoma [Recovered/Resolved]
  - Pain in extremity [Recovered/Resolved]
